FAERS Safety Report 24953361 (Version 2)
Quarter: 2025Q1

REPORT INFORMATION
  Report Type: Spontaneous
  Country: US (occurrence: US)
  Receive Date: 20250211
  Receipt Date: 20250217
  Transmission Date: 20250408
  Serious: No
  Sender: AMGEN
  Company Number: US-AMGEN-USASP2025025260

PATIENT
  Sex: Male

DRUGS (2)
  1. OTEZLA [Suspect]
     Active Substance: APREMILAST
     Indication: Psoriasis
     Route: 065
  2. TREMFYA [Concomitant]
     Active Substance: GUSELKUMAB
     Dosage: UNK UNK, QMO AND ONCE EVERY EIGHT WEEK

REACTIONS (4)
  - Diarrhoea [Unknown]
  - Headache [Unknown]
  - Brain fog [Unknown]
  - Asthenia [Unknown]
